FAERS Safety Report 5819318-0 (Version None)
Quarter: 2008Q3

REPORT INFORMATION
  Report Type: 
  Country: None (occurrence: None)
  Receive Date: 20080723
  Receipt Date: 20080711
  Transmission Date: 20090109
  Serious: Yes (Other)
  Sender: FDA-Public Use
  Company Number: US-MERCK-0807USA02974B1

PATIENT

DRUGS (3)
  1. SINGULAIR [Suspect]
     Route: 064
     Dates: end: 20030901
  2. SINGULAIR [Suspect]
     Route: 064
     Dates: start: 20040330
  3. PULMICORT-100 [Concomitant]
     Route: 064

REACTIONS (3)
  - COLLAPSE OF LUNG [None]
  - EAR DISORDER [None]
  - NEONATAL ASPIRATION [None]
